FAERS Safety Report 12789185 (Version 2)
Quarter: 2016Q4

REPORT INFORMATION
  Report Type: Spontaneous
  Country: IT (occurrence: IT)
  Receive Date: 20160928
  Receipt Date: 20161003
  Transmission Date: 20170207
  Serious: Yes (Hospitalization)
  Sender: FDA-Public Use
  Company Number: IT-BAYER-2016-185553

PATIENT
  Age: 78 Year
  Sex: Male

DRUGS (7)
  1. ENALAPRIL [ENALAPRIL] [Concomitant]
     Active Substance: ENALAPRIL
     Route: 048
  2. PANTORC [Concomitant]
     Active Substance: PANTOPRAZOLE SODIUM
     Route: 048
  3. SEQUACOR [Concomitant]
     Active Substance: BISOPROLOL
     Route: 048
  4. COUMADIN [Suspect]
     Active Substance: WARFARIN SODIUM
     Indication: ATRIAL FIBRILLATION
     Dosage: 5 MG, PRN
     Route: 048
     Dates: start: 20101228
  5. TAMSULOSIN HYDROCHLORIDE. [Concomitant]
     Active Substance: TAMSULOSIN HYDROCHLORIDE
     Route: 048
  6. CARDIOASPIRIN [Suspect]
     Active Substance: ASPIRIN
     Indication: ATRIAL FIBRILLATION
     Dosage: DAILY DOSE 100 MG
     Route: 048
     Dates: start: 20120521, end: 20130530
  7. AUGMENTIN [Concomitant]
     Active Substance: AMOXICILLIN\CLAVULANATE POTASSIUM
     Route: 048

REACTIONS (4)
  - Disorientation [Recovering/Resolving]
  - Cerebral haematoma [Recovering/Resolving]
  - Confusional state [Recovering/Resolving]
  - Cerebral haemorrhage [Recovering/Resolving]

NARRATIVE: CASE EVENT DATE: 20130530
